FAERS Safety Report 13910733 (Version 1)
Quarter: 2017Q3

REPORT INFORMATION
  Report Type: Spontaneous
  Country: JP (occurrence: JP)
  Receive Date: 20170828
  Receipt Date: 20170828
  Transmission Date: 20171127
  Serious: Yes (Hospitalization, Other)
  Sender: FDA-Public Use
  Company Number: JP-EDENBRIDGE PHARMACEUTICALS, LLC-JP-2017EDE000152

PATIENT
  Age: 78 Year
  Sex: Male

DRUGS (5)
  1. PIRARUBICIN [Suspect]
     Active Substance: PIRARUBICIN
     Indication: HISTIOCYTOSIS HAEMATOPHAGIC
     Dosage: UNK
  2. PREDNISOLONE SODIUM PHOSPHATE. [Suspect]
     Active Substance: PREDNISOLONE SODIUM PHOSPHATE
     Indication: HISTIOCYTOSIS HAEMATOPHAGIC
     Dosage: 5 MG, QD
  3. CYCLOPHOSPHAMIDE. [Suspect]
     Active Substance: CYCLOPHOSPHAMIDE
     Indication: HISTIOCYTOSIS HAEMATOPHAGIC
     Dosage: UNK
  4. VINCRISTINE [Suspect]
     Active Substance: VINCRISTINE
     Indication: HISTIOCYTOSIS HAEMATOPHAGIC
     Dosage: UNK
  5. ETOPOSIDE. [Suspect]
     Active Substance: ETOPOSIDE
     Indication: HISTIOCYTOSIS HAEMATOPHAGIC
     Dosage: UNK

REACTIONS (4)
  - Hypovolaemic shock [Not Recovered/Not Resolved]
  - Cerebral salt-wasting syndrome [Not Recovered/Not Resolved]
  - Renal salt-wasting syndrome [Not Recovered/Not Resolved]
  - Neutropenic sepsis [Not Recovered/Not Resolved]
